FAERS Safety Report 9530369 (Version 2)
Quarter: 2013Q3

REPORT INFORMATION
  Report Type: Report from Study
  Country: US (occurrence: US)
  Receive Date: 20130918
  Receipt Date: 20130918
  Transmission Date: 20140515
  Serious: Yes (Other)
  Sender: FDA-Public Use
  Company Number: US-ROCHE-1261020

PATIENT
  Age: 51 Year
  Sex: Male

DRUGS (2)
  1. PEGASYS [Suspect]
     Indication: HEPATITIS C
     Route: 058
     Dates: start: 20130423, end: 20130725
  2. COPEGUS [Suspect]
     Indication: HEPATITIS C
     Route: 065

REACTIONS (6)
  - White blood cell count decreased [Unknown]
  - Hepatic failure [Unknown]
  - Pain in extremity [Unknown]
  - Ascites [Not Recovered/Not Resolved]
  - Blood glucose increased [Unknown]
  - Red blood cell count decreased [Unknown]
